FAERS Safety Report 6278916-3 (Version None)
Quarter: 2009Q3

REPORT INFORMATION
  Report Type: 
  Country: None (occurrence: None)
  Receive Date: 20090723
  Receipt Date: 20090713
  Transmission Date: 20100115
  Serious: Yes (Other)
  Sender: FDA-Public Use
  Company Number: US-JNJFOC-20090607100

PATIENT
  Age: 26 Year
  Sex: Female
  Weight: 88 kg

DRUGS (1)
  1. REMICADE [Suspect]
     Indication: SWEAT GLAND INFECTION
     Dosage: # INFUSIONS AND DATE UNSPECIFIED
     Route: 042

REACTIONS (3)
  - CONJUNCTIVITIS [None]
  - DERMATITIS EXFOLIATIVE [None]
  - RASH GENERALISED [None]
